FAERS Safety Report 9782093 (Version 3)
Quarter: 2014Q1

REPORT INFORMATION
  Report Type: Spontaneous
  Country: IT (occurrence: IT)
  Receive Date: 20131226
  Receipt Date: 20140228
  Transmission Date: 20141002
  Serious: Yes (Other)
  Sender: FDA-Public Use
  Company Number: IT-AMGEN-ITASP2013089686

PATIENT
  Age: 87 Year
  Sex: Female
  Weight: 54 kg

DRUGS (15)
  1. MIMPARA [Suspect]
     Indication: HYPERPARATHYROIDISM
     Dosage: UNK UNK, QD
     Route: 048
     Dates: start: 20131008, end: 20131031
  2. PANTOPRAZOLE [Concomitant]
     Dosage: 20 MG, UNK
  3. SIMVASTATINE [Concomitant]
  4. ALLOPURINOL [Concomitant]
  5. CALCITRIOL [Concomitant]
     Dosage: 0.25 MUG, UNK
  6. LERCANIDIPINE [Concomitant]
     Dosage: 20 MG, UNK
  7. CLOPIDOGREL [Concomitant]
  8. CARVEDILOL [Concomitant]
     Dosage: 6.25 MG, UNK
  9. CALCIUM CARBONATE [Concomitant]
     Dosage: 2 UNK, UNK
  10. SODIUM BICARBONATE [Concomitant]
     Dosage: 500 MG, UNK
  11. EPREX [Concomitant]
  12. FERLIXIT [Concomitant]
  13. MATRIFEN [Concomitant]
  14. PERIDON                            /00498201/ [Concomitant]
     Dosage: 10 MG, UNK
  15. PARACETAMOL [Concomitant]
     Dosage: 1000 MG, UNK

REACTIONS (11)
  - Confusional state [Recovered/Resolved]
  - Somnolence [Recovered/Resolved]
  - Hypocalcaemia [Unknown]
  - Renal artery stenosis [Unknown]
  - Cardiac disorder [Unknown]
  - Renal failure chronic [Unknown]
  - Angiopathy [Unknown]
  - Hypertension [Unknown]
  - Diabetes mellitus [Unknown]
  - Vertigo [Unknown]
  - Osteoporosis [Unknown]
